FAERS Safety Report 7026345-7 (Version None)
Quarter: 2010Q4

REPORT INFORMATION
  Report Type: 
  Country: None (occurrence: None)
  Receive Date: 20101004
  Receipt Date: 20100921
  Transmission Date: 20110411
  Serious: No
  Sender: FDA-Public Use
  Company Number: US-ROXANE LABORATORIES, INC.-2010-RO-01129RO

PATIENT
  Age: 71 Year
  Sex: Female

DRUGS (2)
  1. METHADONE [Suspect]
     Indication: PAIN
     Dosage: 5 MG
     Route: 048
  2. METHADONE [Suspect]
     Dosage: 10 MG
     Route: 048

REACTIONS (5)
  - ACTIVITIES OF DAILY LIVING IMPAIRED [None]
  - DRUG INEFFECTIVE [None]
  - FEELING ABNORMAL [None]
  - MALAISE [None]
  - NAUSEA [None]
